FAERS Safety Report 15940849 (Version 3)
Quarter: 2019Q2

REPORT INFORMATION
  Report Type: Spontaneous
  Country: GB (occurrence: GB)
  Receive Date: 20190208
  Receipt Date: 20190628
  Transmission Date: 20190711
  Serious: Yes (Life-Threatening, Other)
  Sender: FDA-Public Use
  Company Number: GB-B.I. PHARMACEUTICALS,INC./RIDGEFIELD-2019-12-000487

PATIENT
  Sex: Female

DRUGS (1)
  1. CATAPRES [Suspect]
     Active Substance: CLONIDINE HYDROCHLORIDE
     Indication: MENOPAUSAL SYMPTOMS
     Dosage: 2 DF, BID
     Route: 048
     Dates: start: 20180720

REACTIONS (21)
  - Drug intolerance [Unknown]
  - Ill-defined disorder [Unknown]
  - Fatigue [Unknown]
  - Apparent death [Recovering/Resolving]
  - Coma [Recovering/Resolving]
  - Blood sodium decreased [Recovered/Resolved with Sequelae]
  - Inappropriate antidiuretic hormone secretion [Recovered/Resolved with Sequelae]
  - Injury [Unknown]
  - Urinary tract infection [Unknown]
  - Memory impairment [Unknown]
  - Vomiting [Unknown]
  - Dysphagia [Unknown]
  - Dysuria [Unknown]
  - Somnolence [Unknown]
  - Dysgeusia [Unknown]
  - Hallucination [Unknown]
  - Asthenia [Unknown]
  - Seizure [Recovered/Resolved with Sequelae]
  - Confusional state [Unknown]
  - Malaise [Unknown]
  - Anxiety [Unknown]

NARRATIVE: CASE EVENT DATE: 20180730
